FAERS Safety Report 15105349 (Version 5)
Quarter: 2024Q3

REPORT INFORMATION
  Report Type: Report from Study
  Country: US (occurrence: US)
  Receive Date: 20180704
  Receipt Date: 20240903
  Transmission Date: 20241017
  Serious: Yes (Other)
  Sender: ROCHE
  Company Number: US-ROCHE-2146325

PATIENT
  Age: 51 Year
  Sex: Male

DRUGS (1)
  1. HEMLIBRA [Suspect]
     Active Substance: EMICIZUMAB-KXWH
     Indication: Haemophilia A without inhibitors
     Dosage: DOSE AND UNIT: UNKNOWN;
     Route: 065

REACTIONS (7)
  - Meniscus injury [Unknown]
  - Arthropathy [Unknown]
  - Injection site pain [Recovered/Resolved]
  - Intentional product use issue [Unknown]
  - Off label use [Unknown]
  - Joint swelling [Unknown]
  - Arthralgia [Unknown]
